FAERS Safety Report 11668602 (Version 1)
Quarter: 2015Q4

REPORT INFORMATION
  Report Type: Spontaneous
  Country: JP (occurrence: JP)
  Receive Date: 20151027
  Receipt Date: 20151027
  Transmission Date: 20160304
  Serious: Yes (Other)
  Sender: FDA-Public Use
  Company Number: JP-GLAXOSMITHKLINE-JP2015JPN148914

PATIENT
  Sex: Female

DRUGS (3)
  1. LAMICTAL [Suspect]
     Active Substance: LAMOTRIGINE
     Indication: BIPOLAR DISORDER
     Dosage: 1400 MG, 1D
     Route: 048
  2. DEPAS [Suspect]
     Active Substance: ETIZOLAM
     Dosage: 7 MG, 1D
     Route: 048
  3. SOLANAX [Suspect]
     Active Substance: ALPRAZOLAM
     Dosage: 11.2 MG, 1D
     Route: 048

REACTIONS (2)
  - Overdose [Unknown]
  - Coma [Recovered/Resolved]

NARRATIVE: CASE EVENT DATE: 20151017
